FAERS Safety Report 25532501 (Version 1)
Quarter: 2025Q3

REPORT INFORMATION
  Report Type: Spontaneous
  Country: US (occurrence: US)
  Receive Date: 20250709
  Receipt Date: 20250709
  Transmission Date: 20251021
  Serious: Yes (Hospitalization, Other)
  Sender: AUROBINDO
  Company Number: US-MLMSERVICE-20250618-PI546785-00149-1

PATIENT
  Age: 75 Year
  Sex: Female

DRUGS (1)
  1. FLECAINIDE [Suspect]
     Active Substance: FLECAINIDE
     Indication: Atrial fibrillation
     Route: 065

REACTIONS (8)
  - Syncope [Unknown]
  - Acute kidney injury [Unknown]
  - Fall [Unknown]
  - Toxicity to various agents [Recovering/Resolving]
  - Heart failure with reduced ejection fraction [Recovering/Resolving]
  - Electrocardiogram QRS complex prolonged [Recovering/Resolving]
  - Conduction disorder [Recovering/Resolving]
  - Bundle branch block left [Recovering/Resolving]
